FAERS Safety Report 25961805 (Version 1)
Quarter: 2025Q4

REPORT INFORMATION
  Report Type: Spontaneous
  Country: US (occurrence: US)
  Receive Date: 20251027
  Receipt Date: 20251027
  Transmission Date: 20260117
  Serious: No
  Sender: BOEHRINGER INGELHEIM
  Company Number: US-BoehringerIngelheim-2025-BI-103189

PATIENT
  Age: 78 Year

DRUGS (2)
  1. JARDIANCE [Suspect]
     Active Substance: EMPAGLIFLOZIN
     Indication: Diabetes mellitus
  2. INSULIN LISPRO [Suspect]
     Active Substance: INSULIN LISPRO
     Indication: Diabetes mellitus
     Dosage: 6 UNITS OF INSULIN

REACTIONS (5)
  - Poor peripheral circulation [Unknown]
  - Renal disorder [Unknown]
  - Hypoacusis [Unknown]
  - Colour blindness [Unknown]
  - Chondropathy [Unknown]
